FAERS Safety Report 5107535-7 (Version None)
Quarter: 2006Q3

REPORT INFORMATION
  Report Type: 
  Country: None (occurrence: None)
  Receive Date: 20060731
  Receipt Date: 20060407
  Transmission Date: 20061208
  Serious: No
  Sender: FDA-Public Use
  Company Number: 2006PV011736

PATIENT
  Age: 61 Year
  Sex: Female
  Weight: 66.6788 kg

DRUGS (6)
  1. BYETTA [Suspect]
     Indication: DIABETES MELLITUS NON-INSULIN-DEPENDENT
     Dosage: 5 MCG; BID; SC
     Route: 058
     Dates: start: 20060331
  2. HUMULIN N [Concomitant]
  3. HUMULIN 70/30 [Concomitant]
  4. HUMALOG [Concomitant]
  5. METFORMIN HCL [Concomitant]
  6. SULFONYLUREA [Concomitant]

REACTIONS (9)
  - ANOREXIA [None]
  - COUGH [None]
  - DIARRHOEA [None]
  - INFLUENZA LIKE ILLNESS [None]
  - MYALGIA [None]
  - NAUSEA [None]
  - PHARYNGOLARYNGEAL PAIN [None]
  - SINUS CONGESTION [None]
  - WEIGHT DECREASED [None]
